FAERS Safety Report 17461890 (Version 1)
Quarter: 2020Q1

REPORT INFORMATION
  Report Type: Spontaneous
  Country: IT (occurrence: IT)
  Receive Date: 20200226
  Receipt Date: 20200226
  Transmission Date: 20200409
  Serious: Yes (Hospitalization)
  Sender: FDA-Public Use
  Company Number: IT-MYLANLABS-2020M1017703

PATIENT
  Age: 34 Year
  Sex: Female
  Weight: 91 kg

DRUGS (6)
  1. OLANZAPINE. [Suspect]
     Active Substance: OLANZAPINE
     Indication: DEPRESSION
     Dosage: 10 MILLIGRAM, QD
     Route: 048
     Dates: start: 20190301, end: 20191024
  2. ESOMEPRAZOLE SODIUM. [Concomitant]
     Active Substance: ESOMEPRAZOLE SODIUM
     Dosage: 20 MILLIGRAM, QD
  3. EUTIROX [Concomitant]
     Active Substance: LEVOTHYROXINE SODIUM
     Dosage: 175 MICROGRAM, QD
  4. METFORMIN [Concomitant]
     Active Substance: METFORMIN HYDROCHLORIDE
     Dosage: 2000 MILLIGRAM, QD
  5. RIVOTRIL [Concomitant]
     Active Substance: CLONAZEPAM
     Dosage: 40 GTT DROPS, QD
  6. ZOLOFT [Concomitant]
     Active Substance: SERTRALINE HYDROCHLORIDE
     Dosage: 50 MILLIGRAM, QD

REACTIONS (2)
  - Off label use [Unknown]
  - Hyperglycaemia [Recovered/Resolved with Sequelae]

NARRATIVE: CASE EVENT DATE: 20191024
